FAERS Safety Report 5638819-1 (Version None)
Quarter: 2008Q1

REPORT INFORMATION
  Report Type: 
  Country: None (occurrence: None)
  Receive Date: 20080226
  Receipt Date: 20080219
  Transmission Date: 20080703
  Serious: Yes (Other)
  Sender: FDA-Public Use
  Company Number: PHEH2008US01831

PATIENT
  Age: 62 Week
  Sex: Male

DRUGS (9)
  1. PLAVIX [Concomitant]
     Dosage: 75 MG, UNK
  2. PROTONIX [Concomitant]
     Dosage: 40 MG, UNK
  3. TRICOR [Concomitant]
  4. ZETIA [Concomitant]
     Dosage: 10 MG, UNK
  5. COLACE [Concomitant]
  6. CLARITIN [Suspect]
  7. EXELON [Suspect]
     Indication: COGNITIVE DISORDER
     Dosage: 9.5 MG, QD
     Route: 062
     Dates: start: 20071129
  8. EXELON [Suspect]
     Dosage: 4.5 MG, UNK
  9. EXELON [Suspect]
     Dosage: 9.5 MG, UNK

REACTIONS (4)
  - ABDOMINAL PAIN UPPER [None]
  - CHOLECYSTECTOMY [None]
  - CHOLECYSTITIS [None]
  - GALLBLADDER DISORDER [None]
